FAERS Safety Report 13998848 (Version 1)
Quarter: 2017Q3

REPORT INFORMATION
  Report Type: Spontaneous
  Country: US (occurrence: None)
  Receive Date: 20170922
  Receipt Date: 20170922
  Transmission Date: 20171128
  Serious: Yes (Hospitalization)
  Sender: FDA-Public Use
  Company Number: None

PATIENT
  Age: 70 Year
  Sex: Male
  Weight: 152.86 kg

DRUGS (1)
  1. FUROSEMIDE. [Suspect]
     Active Substance: FUROSEMIDE
     Indication: CARDIAC FAILURE CONGESTIVE
     Route: 048
     Dates: start: 20151023

REACTIONS (10)
  - Cardiac failure acute [None]
  - Dyspnoea exertional [None]
  - Fluid overload [None]
  - Oedema peripheral [None]
  - Pleural effusion [None]
  - Treatment noncompliance [None]
  - Orthopnoea [None]
  - Pulmonary oedema [None]
  - Weight increased [None]
  - Chronic obstructive pulmonary disease [None]

NARRATIVE: CASE EVENT DATE: 20170525
